FAERS Safety Report 7906062-9 (Version None)
Quarter: 2011Q4

REPORT INFORMATION
  Report Type: 
  Country: None (occurrence: None)
  Receive Date: 20111110
  Receipt Date: 20111110
  Transmission Date: 20120403
  Serious: Yes (Hospitalization, Disabling)
  Sender: FDA-Public Use
  Company Number: None

PATIENT
  Age: 89 Year
  Sex: Female
  Weight: 673.58 kg

DRUGS (2)
  1. BRILINTA [Suspect]
     Indication: CORONARY ARTERY DISEASE
     Dosage: 180MG
     Route: 048
     Dates: start: 20111106, end: 20111109
  2. BRILINTA [Suspect]
     Indication: CORONARY ARTERIAL STENT INSERTION
     Dosage: 180MG
     Route: 048
     Dates: start: 20111106, end: 20111109

REACTIONS (3)
  - VENTRICULAR ARRHYTHMIA [None]
  - ATRIOVENTRICULAR BLOCK COMPLETE [None]
  - CARDIO-RESPIRATORY ARREST [None]
